FAERS Safety Report 18489688 (Version 3)
Quarter: 2020Q4

REPORT INFORMATION
  Report Type: Report from Study
  Country: US (occurrence: US)
  Receive Date: 20201111
  Receipt Date: 20201215
  Transmission Date: 20210114
  Serious: Yes (Hospitalization, Other)
  Sender: FDA-Public Use
  Company Number: US-GLAXOSMITHKLINE-US2020AMR191274

PATIENT
  Sex: Female

DRUGS (3)
  1. NIRAPARIB [Suspect]
     Active Substance: NIRAPARIB
     Dosage: 200 MG, QD
     Route: 065
  2. NIRAPARIB [Suspect]
     Active Substance: NIRAPARIB
     Dosage: 200 MG, QD
     Route: 065
     Dates: start: 20201116
  3. NIRAPARIB [Suspect]
     Active Substance: NIRAPARIB
     Indication: MALIGNANT PERITONEAL NEOPLASM
     Dosage: 200 MG, QD, IN AM WITH FOOD
     Route: 065
     Dates: start: 20200917, end: 20201110

REACTIONS (10)
  - Restless legs syndrome [Unknown]
  - Asthenia [Unknown]
  - Off label use [Unknown]
  - Insomnia [Recovered/Resolved]
  - Intestinal obstruction [Unknown]
  - Nausea [Recovered/Resolved]
  - Decreased activity [Unknown]
  - Haemoglobin decreased [Unknown]
  - Constipation [Not Recovered/Not Resolved]
  - Carbohydrate antigen 125 increased [Unknown]
